FAERS Safety Report 8456754-0 (Version None)
Quarter: 2012Q2

REPORT INFORMATION
  Report Type: 
  Country: None (occurrence: None)
  Receive Date: 20120323
  Receipt Date: 20111025
  Transmission Date: 20120825
  Serious: Yes (Disabling)
  Sender: FDA-Public Use
  Company Number: 163-21880-11091855

PATIENT
  Age: 71 Year
  Sex: Female

DRUGS (15)
  1. REVLIMID [Suspect]
     Indication: 5Q MINUS SYNDROME
     Dosage: 5 MG, QOD,PO  : 5 MG, 1 IN 1 D, PO
     Route: 048
     Dates: start: 20100601, end: 20100827
  2. REVLIMID [Suspect]
     Indication: 5Q MINUS SYNDROME
     Dosage: 5 MG, QOD,PO  : 5 MG, 1 IN 1 D, PO
     Route: 048
     Dates: start: 20110721, end: 20110929
  3. ALLOPURINOL [Concomitant]
  4. ZOLOFT [Concomitant]
  5. ASPIRIN [Concomitant]
  6. ANTIVERT (MECLOZINE) [Concomitant]
  7. ATARAX [Concomitant]
  8. WELCHOL [Concomitant]
  9. GLEEVEC [Concomitant]
  10. PERCOCET [Concomitant]
  11. IMODIUM [Concomitant]
  12. COMPAZINE [Concomitant]
  13. M.V.I. [Concomitant]
  14. DYAZIDE [Concomitant]
  15. FE (TEGAFUR) [Concomitant]

REACTIONS (3)
  - NO THERAPEUTIC RESPONSE [None]
  - DISEASE PROGRESSION [None]
  - MYELODYSPLASTIC SYNDROME [None]
